FAERS Safety Report 5231092-8 (Version None)
Quarter: 2007Q1

REPORT INFORMATION
  Report Type: 
  Country: None (occurrence: None)
  Receive Date: 20070206
  Receipt Date: 20070201
  Transmission Date: 20070707
  Serious: Yes (Life-Threatening, Congenital Anomaly)
  Sender: FDA-Public Use
  Company Number: TH-GLAXOSMITHKLINE-B0447625A

PATIENT
  Sex: Male

DRUGS (5)
  1. ZIDOVUDINE [Suspect]
     Indication: ANTIVIRAL PROPHYLAXIS
     Dosage: .5CC FOUR TIMES PER DAY
     Route: 048
     Dates: start: 20061003, end: 20061009
  2. ZIDOVUDINE [Suspect]
     Dosage: 300MG VARIABLE DOSE
     Dates: start: 20060901
  3. NEVIRAPINE [Suspect]
     Indication: ANTIVIRAL PROPHYLAXIS
     Dosage: 200MG SINGLE DOSE
     Dates: start: 20061002
  4. LOPINAVIR + RITONAVIR [Suspect]
     Indication: ANTIVIRAL PROPHYLAXIS
     Dates: start: 20061002
  5. DIDANOSINE [Suspect]
     Indication: ANTIVIRAL PROPHYLAXIS
     Dosage: 250MG PER DAY
     Dates: start: 20061002

REACTIONS (22)
  - ABSCESS [None]
  - ATELECTASIS NEONATAL [None]
  - CAESAREAN SECTION [None]
  - CONGENITAL PANCREATIC ANOMALY [None]
  - DRUG EXPOSURE DURING PREGNANCY [None]
  - DUODENAL OBSTRUCTION [None]
  - DUODENAL STENOSIS [None]
  - FEEDING DISORDER NEONATAL [None]
  - HAEMATOCRIT DECREASED [None]
  - HAEMOGLOBIN DECREASED [None]
  - HYPOTHYROIDISM [None]
  - INCISION SITE ABSCESS [None]
  - NEONATAL DISORDER [None]
  - PALLOR [None]
  - PANCREATIC DISORDER [None]
  - PYREXIA [None]
  - SMALL FOR DATES BABY [None]
  - TACHYCARDIA [None]
  - TACHYPNOEA [None]
  - THYROXINE FREE INCREASED [None]
  - TRANSIENT TACHYPNOEA OF THE NEWBORN [None]
  - TRISOMY 21 [None]
